FAERS Safety Report 16445355 (Version 1)
Quarter: 2019Q2

REPORT INFORMATION
  Report Type: Spontaneous
  Country: JP (occurrence: JP)
  Receive Date: 20190618
  Receipt Date: 20190618
  Transmission Date: 20190711
  Serious: Yes (Death, Life-Threatening, Hospitalization, Other)
  Sender: FDA-Public Use
  Company Number: JP-SA-2019SA164481

PATIENT
  Age: 66 Year
  Sex: Male

DRUGS (4)
  1. OLMESARTAN [OLMESARTAN MEDOXOMIL] [Concomitant]
     Dosage: UNK
  2. ATELEC [Concomitant]
     Active Substance: CILNIDIPINE
     Dosage: UNK
  3. XYZALL [Suspect]
     Active Substance: LEVOCETIRIZINE DIHYDROCHLORIDE
     Indication: RHINITIS ALLERGIC
     Dosage: UNK UNK, UNK
     Route: 048
     Dates: start: 201904
  4. CARDENALIN [Concomitant]
     Active Substance: DOXAZOSIN MESYLATE
     Dosage: UNK

REACTIONS (8)
  - Ascites [Fatal]
  - Disorientation [Fatal]
  - Candida infection [Fatal]
  - Jaundice [Fatal]
  - Acute hepatic failure [Fatal]
  - Hepatic encephalopathy [Fatal]
  - Malaise [Fatal]
  - Hyperammonaemia [Fatal]

NARRATIVE: CASE EVENT DATE: 20190427
